FAERS Safety Report 6316016-4 (Version None)
Quarter: 2009Q3

REPORT INFORMATION
  Report Type: 
  Country: None (occurrence: None)
  Receive Date: 20090820
  Receipt Date: 20090817
  Transmission Date: 20100115
  Serious: Yes (Other)
  Sender: FDA-Public Use
  Company Number: BE-JNJFOC-20090607552

PATIENT
  Age: 40 Year
  Sex: Female

DRUGS (2)
  1. TAVANIC [Suspect]
     Indication: CYSTITIS
     Route: 048
  2. HARMONET [Concomitant]
     Indication: CONTRACEPTION
     Route: 065

REACTIONS (5)
  - DEAFNESS [None]
  - HEARING IMPAIRED [None]
  - HYPOACUSIS [None]
  - TENDONITIS [None]
  - TINNITUS [None]
